FAERS Safety Report 15608532 (Version 10)
Quarter: 2025Q2

REPORT INFORMATION
  Report Type: Spontaneous
  Country: CA (occurrence: CA)
  Receive Date: 20181112
  Receipt Date: 20250515
  Transmission Date: 20250716
  Serious: Yes (Life-Threatening, Hospitalization, Disabling, Other)
  Sender: TAKEDA
  Company Number: CA-SHIRE-CA201843216

PATIENT
  Age: 3 Year
  Sex: Female
  Weight: 64 kg

DRUGS (109)
  1. HUMAN IMMUNOGLOBULIN G [Suspect]
     Active Substance: HUMAN IMMUNOGLOBULIN G
     Indication: Juvenile idiopathic arthritis
  2. HUMAN IMMUNOGLOBULIN G [Suspect]
     Active Substance: HUMAN IMMUNOGLOBULIN G
     Indication: Rheumatoid arthritis
  3. HUMAN IMMUNOGLOBULIN G [Suspect]
     Active Substance: HUMAN IMMUNOGLOBULIN G
     Indication: Off label use
  4. HUMAN IMMUNOGLOBULIN G [Suspect]
     Active Substance: HUMAN IMMUNOGLOBULIN G
     Indication: Juvenile idiopathic arthritis
  5. HUMAN IMMUNOGLOBULIN G [Suspect]
     Active Substance: HUMAN IMMUNOGLOBULIN G
  6. METHOTREXATE [Suspect]
     Active Substance: METHOTREXATE
     Indication: Juvenile idiopathic arthritis
     Dosage: UNK UNK, 1/WEEK
  7. METHOTREXATE [Suspect]
     Active Substance: METHOTREXATE
     Indication: Rheumatoid arthritis
     Dosage: 15 MILLIGRAM, 1/WEEK
  8. METHOTREXATE [Suspect]
     Active Substance: METHOTREXATE
  9. METHOTREXATE [Suspect]
     Active Substance: METHOTREXATE
     Dosage: UNK UNK, 1/WEEK
  10. METHOTREXATE [Suspect]
     Active Substance: METHOTREXATE
     Dosage: UNK UNK, 1/WEEK
  11. GAMASTAN [Suspect]
     Active Substance: HUMAN IMMUNOGLOBULIN G
     Indication: Juvenile idiopathic arthritis
  12. GAMASTAN [Suspect]
     Active Substance: HUMAN IMMUNOGLOBULIN G
  13. PREDNISONE [Suspect]
     Active Substance: PREDNISONE
     Indication: Juvenile idiopathic arthritis
     Dosage: 5 MILLIGRAM, BID
  14. PREDNISONE [Suspect]
     Active Substance: PREDNISONE
  15. PREDNISONE [Suspect]
     Active Substance: PREDNISONE
     Dosage: 1.3 MILLIGRAM, BID
  16. PREDNISONE [Suspect]
     Active Substance: PREDNISONE
     Dosage: 10 MILLIGRAM, QD
  17. PREDNISONE [Suspect]
     Active Substance: PREDNISONE
     Dosage: 2.6 MILLIGRAM, QD
  18. PREDNISONE [Suspect]
     Active Substance: PREDNISONE
  19. PREDNISONE [Suspect]
     Active Substance: PREDNISONE
  20. PREDNISONE [Suspect]
     Active Substance: PREDNISONE
  21. PREDNISONE [Suspect]
     Active Substance: PREDNISONE
  22. PREDNISONE [Suspect]
     Active Substance: PREDNISONE
     Indication: Juvenile idiopathic arthritis
     Dosage: 3 MILLIGRAM, BID
  23. PREDNISONE [Suspect]
     Active Substance: PREDNISONE
     Indication: Rheumatoid arthritis
     Dosage: 5 MILLIGRAM, BID
  24. PREDNISONE [Suspect]
     Active Substance: PREDNISONE
  25. PREDNISONE [Suspect]
     Active Substance: PREDNISONE
     Dosage: 1.3 MILLIGRAM, BID
  26. PREDNISONE [Suspect]
     Active Substance: PREDNISONE
     Dosage: 50 MILLIGRAM, QD
  27. PREDNISONE [Suspect]
     Active Substance: PREDNISONE
     Dosage: 5 MILLIGRAM, BID
  28. ACTEMRA [Suspect]
     Active Substance: TOCILIZUMAB
     Indication: Juvenile idiopathic arthritis
     Dosage: 280 MILLIGRAM, 1/WEEK
  29. ACTEMRA [Suspect]
     Active Substance: TOCILIZUMAB
     Indication: Still^s disease
     Dosage: 280 MILLIGRAM, Q2WEEKS
  30. ACTEMRA [Suspect]
     Active Substance: TOCILIZUMAB
     Indication: Rheumatoid arthritis
  31. ACTEMRA [Suspect]
     Active Substance: TOCILIZUMAB
  32. ACTEMRA [Suspect]
     Active Substance: TOCILIZUMAB
     Dosage: 280 MILLIGRAM, QD
  33. ACTEMRA [Suspect]
     Active Substance: TOCILIZUMAB
     Dosage: 560 MILLIGRAM, QD
  34. ACTEMRA [Suspect]
     Active Substance: TOCILIZUMAB
  35. ACTEMRA [Suspect]
     Active Substance: TOCILIZUMAB
     Dosage: 560 MILLIGRAM, QD
  36. ANAKINRA [Suspect]
     Active Substance: ANAKINRA
     Indication: Juvenile idiopathic arthritis
     Dosage: 50 MILLIGRAM, QD
  37. ANAKINRA [Suspect]
     Active Substance: ANAKINRA
     Indication: Rheumatoid arthritis
     Dosage: 1 DOSAGE FORM, QD
  38. ANAKINRA [Suspect]
     Active Substance: ANAKINRA
     Dosage: UNK UNK, QD
  39. ANAKINRA [Suspect]
     Active Substance: ANAKINRA
     Dosage: 50 MILLIGRAM, QD
  40. ANAKINRA [Suspect]
     Active Substance: ANAKINRA
     Dosage: 50 MILLIGRAM, 1/WEEK
  41. ANAKINRA [Suspect]
     Active Substance: ANAKINRA
  42. ENBREL [Suspect]
     Active Substance: ETANERCEPT
     Indication: Juvenile idiopathic arthritis
     Dosage: 12.5 MILLIGRAM, 4/WEEK
  43. ENBREL [Suspect]
     Active Substance: ETANERCEPT
     Indication: Rheumatoid arthritis
  44. ENBREL [Suspect]
     Active Substance: ETANERCEPT
     Dosage: 50 MILLIGRAM, 1/WEEK
  45. ENBREL [Suspect]
     Active Substance: ETANERCEPT
     Dosage: 12.5 MILLIGRAM, 1/WEEK
  46. ENBREL [Suspect]
     Active Substance: ETANERCEPT
     Dosage: 50 MILLIGRAM, QD
  47. ENBREL [Suspect]
     Active Substance: ETANERCEPT
  48. ENBREL [Suspect]
     Active Substance: ETANERCEPT
  49. ENBREL [Suspect]
     Active Substance: ETANERCEPT
  50. ENBREL [Suspect]
     Active Substance: ETANERCEPT
  51. ENBREL [Suspect]
     Active Substance: ETANERCEPT
     Dosage: 4 DOSAGE FORM, 1/WEEK
  52. ENBREL [Suspect]
     Active Substance: ETANERCEPT
  53. ENBREL [Suspect]
     Active Substance: ETANERCEPT
     Dosage: 50 MILLIGRAM, 1/WEEK
  54. HUMIRA [Suspect]
     Active Substance: ADALIMUMAB
     Indication: Juvenile idiopathic arthritis
  55. HUMIRA [Suspect]
     Active Substance: ADALIMUMAB
     Indication: Rheumatoid arthritis
  56. HYDROXYCHLOROQUINE [Suspect]
     Active Substance: HYDROXYCHLOROQUINE
     Indication: Juvenile idiopathic arthritis
  57. HYDROXYCHLOROQUINE [Suspect]
     Active Substance: HYDROXYCHLOROQUINE
     Indication: Rheumatoid arthritis
     Dosage: 5 DOSAGE FORM, QD
  58. HYDROXYCHLOROQUINE [Suspect]
     Active Substance: HYDROXYCHLOROQUINE
     Dosage: 5 MILLIGRAM, QD
  59. HYDROXYCHLOROQUINE [Suspect]
     Active Substance: HYDROXYCHLOROQUINE
     Dosage: 1 DOSAGE FORM, QD
  60. HYDROXYCHLOROQUINE [Suspect]
     Active Substance: HYDROXYCHLOROQUINE
     Dosage: 5 MILLIGRAM/KILOGRAM, QD
  61. HYDROXYCHLOROQUINE [Suspect]
     Active Substance: HYDROXYCHLOROQUINE
     Dosage: 5 MILLIGRAM, QD
  62. HYDROXYCHLOROQUINE SULFATE [Suspect]
     Active Substance: HYDROXYCHLOROQUINE SULFATE
     Indication: Juvenile idiopathic arthritis
     Dosage: 5 MILLIGRAM/KILOGRAM, QD
  63. HYDROXYCHLOROQUINE SULFATE [Suspect]
     Active Substance: HYDROXYCHLOROQUINE SULFATE
  64. INFLIXIMAB [Suspect]
     Active Substance: INFLIXIMAB
     Indication: Juvenile idiopathic arthritis
  65. INFLIXIMAB [Suspect]
     Active Substance: INFLIXIMAB
     Indication: Rheumatoid arthritis
     Dosage: 3 MILLIGRAM/KILOGRAM, 1/WEEK
  66. INFLIXIMAB [Suspect]
     Active Substance: INFLIXIMAB
     Dosage: 3 MILLIGRAM, 1/WEEK
  67. INFLIXIMAB [Suspect]
     Active Substance: INFLIXIMAB
  68. INFLIXIMAB [Suspect]
     Active Substance: INFLIXIMAB
  69. INFLIXIMAB [Suspect]
     Active Substance: INFLIXIMAB
  70. INFLIXIMAB [Suspect]
     Active Substance: INFLIXIMAB
     Dosage: 1 DOSAGE FORM, 1/WEEK
  71. INFLIXIMAB [Suspect]
     Active Substance: INFLIXIMAB
  72. NAPROXEN [Suspect]
     Active Substance: NAPROXEN
     Indication: Juvenile idiopathic arthritis
  73. NAPROXEN [Suspect]
     Active Substance: NAPROXEN
     Indication: Rheumatoid arthritis
  74. NAPROXEN SODIUM [Suspect]
     Active Substance: NAPROXEN SODIUM
     Indication: Juvenile idiopathic arthritis
  75. ORENCIA [Suspect]
     Active Substance: ABATACEPT
     Indication: Juvenile idiopathic arthritis
     Dosage: 250 MILLIGRAM, MONTHLY
  76. ORENCIA [Suspect]
     Active Substance: ABATACEPT
     Indication: Rheumatoid arthritis
  77. ORENCIA [Suspect]
     Active Substance: ABATACEPT
  78. ORENCIA [Suspect]
     Active Substance: ABATACEPT
     Dosage: 1 DOSAGE FORM, MONTHLY
  79. ORENCIA [Suspect]
     Active Substance: ABATACEPT
     Dosage: 250 MILLIGRAM, MONTHLY
  80. SULFASALAZINE [Suspect]
     Active Substance: SULFASALAZINE
     Indication: Juvenile idiopathic arthritis
     Dosage: 250 MILLIGRAM, QD
  81. SULFASALAZINE [Suspect]
     Active Substance: SULFASALAZINE
     Indication: Rheumatoid arthritis
  82. TRIAMCINOLONE ACETONIDE [Suspect]
     Active Substance: TRIAMCINOLONE ACETONIDE
     Indication: Juvenile idiopathic arthritis
  83. TRIAMCINOLONE ACETONIDE [Suspect]
     Active Substance: TRIAMCINOLONE ACETONIDE
     Indication: Rheumatoid arthritis
     Dosage: 5 MILLIGRAM, QD
  84. TRIAMCINOLONE ACETONIDE [Suspect]
     Active Substance: TRIAMCINOLONE ACETONIDE
     Indication: Seasonal allergy
  85. TRIAMCINOLONE HEXACETONIDE [Suspect]
     Active Substance: TRIAMCINOLONE HEXACETONIDE
     Indication: Juvenile idiopathic arthritis
  86. TRIAMCINOLONE HEXACETONIDE [Suspect]
     Active Substance: TRIAMCINOLONE HEXACETONIDE
     Indication: Rheumatoid arthritis
  87. XELJANZ [Suspect]
     Active Substance: TOFACITINIB CITRATE
     Indication: Product used for unknown indication
  88. ADALIMUMAB [Suspect]
     Active Substance: ADALIMUMAB
     Indication: Juvenile idiopathic arthritis
  89. ADALIMUMAB [Suspect]
     Active Substance: ADALIMUMAB
     Indication: Rheumatoid arthritis
  90. ADALIMUMAB [Suspect]
     Active Substance: ADALIMUMAB
  91. ADALIMUMAB [Suspect]
     Active Substance: ADALIMUMAB
  92. TOCILIZUMAB [Suspect]
     Active Substance: TOCILIZUMAB
     Indication: Juvenile idiopathic arthritis
  93. TOCILIZUMAB [Suspect]
     Active Substance: TOCILIZUMAB
     Indication: Rheumatoid arthritis
  94. KINERET [Suspect]
     Active Substance: ANAKINRA
     Indication: Juvenile idiopathic arthritis
     Dosage: 50 MILLIGRAM, QD
  95. NAPROXEN [Suspect]
     Active Substance: NAPROXEN
     Indication: Juvenile idiopathic arthritis
  96. NAPROXEN [Suspect]
     Active Substance: NAPROXEN
     Indication: Rheumatoid arthritis
     Dosage: 1.3 MILLIGRAM, BID
  97. NAPROXEN [Suspect]
     Active Substance: NAPROXEN
     Dosage: 5.0 MILLIGRAM, BID
  98. NAPROXEN [Suspect]
     Active Substance: NAPROXEN
     Dosage: 5.0 MILLIGRAM, BID
  99. ERELZI [Suspect]
     Active Substance: ETANERCEPT-SZZS
     Indication: Juvenile idiopathic arthritis
  100. ERELZI [Suspect]
     Active Substance: ETANERCEPT-SZZS
     Indication: Rheumatoid arthritis
  101. ERELZI [Suspect]
     Active Substance: ETANERCEPT-SZZS
  102. ERELZI [Suspect]
     Active Substance: ETANERCEPT-SZZS
     Dosage: 25 MILLIGRAM, 1/WEEK
  103. XELJANZ XR [Suspect]
     Active Substance: TOFACITINIB CITRATE
     Indication: Rheumatoid arthritis
     Dosage: 11 MILLIGRAM, QD
  104. HYRIMOZ [Suspect]
     Active Substance: ADALIMUMAB-ADAZ
     Indication: Juvenile idiopathic arthritis
  105. HYRIMOZ [Suspect]
     Active Substance: ADALIMUMAB-ADAZ
     Indication: Rheumatoid arthritis
  106. TRIAMCINOLONE [Suspect]
     Active Substance: TRIAMCINOLONE
     Indication: Juvenile idiopathic arthritis
  107. NAPROXEN [Suspect]
     Active Substance: NAPROXEN
     Indication: Juvenile idiopathic arthritis
  108. NAPROXEN [Suspect]
     Active Substance: NAPROXEN
     Indication: Rheumatoid arthritis
  109. FOLIC ACID [Concomitant]
     Active Substance: FOLIC ACID
     Indication: Product used for unknown indication

REACTIONS (53)
  - Adrenal insufficiency [Not Recovered/Not Resolved]
  - Antibody test positive [Not Recovered/Not Resolved]
  - Arthritis [Not Recovered/Not Resolved]
  - Arthropathy [Not Recovered/Not Resolved]
  - Body height below normal [Not Recovered/Not Resolved]
  - Bone density decreased [Not Recovered/Not Resolved]
  - Bone density increased [Unknown]
  - C-reactive protein abnormal [Unknown]
  - C-reactive protein increased [Not Recovered/Not Resolved]
  - Diarrhoea [Not Recovered/Not Resolved]
  - Dizziness [Not Recovered/Not Resolved]
  - Drug intolerance [Not Recovered/Not Resolved]
  - Drug specific antibody [Not Recovered/Not Resolved]
  - Gastroenteritis viral [Not Recovered/Not Resolved]
  - Human antichimeric antibody positive [Not Recovered/Not Resolved]
  - Hypocalcaemia [Not Recovered/Not Resolved]
  - Hypokalaemia [Not Recovered/Not Resolved]
  - Hypotension [Not Recovered/Not Resolved]
  - Immunodeficiency [Not Recovered/Not Resolved]
  - Joint destruction [Unknown]
  - Joint effusion [Unknown]
  - Joint injury [Unknown]
  - Juvenile idiopathic arthritis [Not Recovered/Not Resolved]
  - Liver function test abnormal [Not Recovered/Not Resolved]
  - Loss of consciousness [Not Recovered/Not Resolved]
  - Loss of personal independence in daily activities [Not Recovered/Not Resolved]
  - Mobility decreased [Not Recovered/Not Resolved]
  - Nausea [Not Recovered/Not Resolved]
  - Obesity [Not Recovered/Not Resolved]
  - Polyarthritis [Not Recovered/Not Resolved]
  - Psoriasis [Not Recovered/Not Resolved]
  - Quality of life decreased [Unknown]
  - Red blood cell sedimentation rate increased [Not Recovered/Not Resolved]
  - Septic shock [Not Recovered/Not Resolved]
  - Short stature [Unknown]
  - Synovitis [Not Recovered/Not Resolved]
  - Vomiting [Not Recovered/Not Resolved]
  - Wheelchair user [Not Recovered/Not Resolved]
  - Pleural effusion [Not Recovered/Not Resolved]
  - Pyrexia [Not Recovered/Not Resolved]
  - Red blood cell sedimentation rate abnormal [Unknown]
  - Rheumatoid arthritis [Unknown]
  - Arthralgia [Unknown]
  - Therapy non-responder [Not Recovered/Not Resolved]
  - Drug ineffective [Not Recovered/Not Resolved]
  - Underdose [Unknown]
  - Product use issue [Unknown]
  - Prescribed underdose [Unknown]
  - Product use in unapproved indication [Unknown]
  - Off label use [Unknown]
  - Contraindicated product administered [Not Recovered/Not Resolved]
  - Therapeutic product effect decreased [Unknown]
  - Condition aggravated [Not Recovered/Not Resolved]
